FAERS Safety Report 13587567 (Version 1)
Quarter: 2017Q2

REPORT INFORMATION
  Report Type: Spontaneous
  Country: US (occurrence: US)
  Receive Date: 20170526
  Receipt Date: 20170526
  Transmission Date: 20170830
  Serious: No
  Sender: FDA-Public Use
  Company Number: None

PATIENT
  Age: 37 Year
  Sex: Female
  Weight: 90.6 kg

DRUGS (1)
  1. NUVARING [Suspect]
     Active Substance: ETHINYL ESTRADIOL\ETONOGESTREL
     Indication: CONTRACEPTION
     Dosage: DOSE AMOUNT - 0.12/0.015MG 1 RING INSERTED VAGINALLY, LEAVE FOR 3 WEEKS, REMOVE FOR 1 WEEK.
     Route: 067
     Dates: start: 20170501, end: 20170522

REACTIONS (2)
  - Deep vein thrombosis [None]
  - Thrombophlebitis superficial [None]

NARRATIVE: CASE EVENT DATE: 20170522
